FAERS Safety Report 14667975 (Version 5)
Quarter: 2018Q3

REPORT INFORMATION
  Report Type: Spontaneous
  Country: JP (occurrence: JP)
  Receive Date: 20180322
  Receipt Date: 20180807
  Transmission Date: 20181010
  Serious: Yes (Hospitalization, Other)
  Sender: FDA-Public Use
  Company Number: JP-BRISTOL-MYERS SQUIBB COMPANY-BMS-2017-055534

PATIENT
  Age: 62 Year
  Sex: Male

DRUGS (10)
  1. OPDIVO [Suspect]
     Active Substance: NIVOLUMAB
     Indication: NON-SMALL CELL LUNG CANCER RECURRENT
     Dosage: 180 MG, UNK
     Route: 041
     Dates: start: 20160414, end: 20160414
  2. OPDIVO [Suspect]
     Active Substance: NIVOLUMAB
     Indication: PRODUCT USED FOR UNKNOWN INDICATION
     Dosage: 180 MG, UNK
     Route: 041
     Dates: start: 20170105, end: 20170105
  3. OPDIVO [Suspect]
     Active Substance: NIVOLUMAB
     Indication: PRODUCT USED FOR UNKNOWN INDICATION
     Dosage: 180 MG, UNK
     Route: 041
     Dates: start: 20160428, end: 20160428
  4. OPDIVO [Suspect]
     Active Substance: NIVOLUMAB
     Indication: PRODUCT USED FOR UNKNOWN INDICATION
     Dosage: 177 MG, UNK
     Route: 041
     Dates: start: 20161123, end: 20161123
  5. OPDIVO [Suspect]
     Active Substance: NIVOLUMAB
     Indication: PRODUCT USED FOR UNKNOWN INDICATION
     Dosage: 180 MG, UNK
     Route: 041
     Dates: start: 20161208, end: 20161222
  6. OPDIVO [Suspect]
     Active Substance: NIVOLUMAB
     Indication: PRODUCT USED FOR UNKNOWN INDICATION
     Dosage: 168 MG, UNK
     Route: 041
     Dates: start: 20160901, end: 20160901
  7. OPDIVO [Suspect]
     Active Substance: NIVOLUMAB
     Indication: PRODUCT USED FOR UNKNOWN INDICATION
     Dosage: UNK
     Route: 041
     Dates: end: 201709
  8. OPDIVO [Suspect]
     Active Substance: NIVOLUMAB
     Indication: PRODUCT USED FOR UNKNOWN INDICATION
     Dosage: 161.4 MG, UNK
     Route: 041
     Dates: start: 20160915, end: 20160915
  9. OPDIVO [Suspect]
     Active Substance: NIVOLUMAB
     Indication: PRODUCT USED FOR UNKNOWN INDICATION
     Dosage: 160 MG, UNK
     Route: 041
     Dates: start: 20161006, end: 20161110
  10. BEVACIZUMAB. [Suspect]
     Active Substance: BEVACIZUMAB
     Indication: NON-SMALL CELL LUNG CANCER RECURRENT
     Dosage: UNK
     Route: 065
     Dates: start: 20150318, end: 20160317

REACTIONS (4)
  - Hypoalbuminaemia [Recovering/Resolving]
  - Small intestinal perforation [Recovering/Resolving]
  - Colitis [Recovering/Resolving]
  - Prescribed overdose [Unknown]

NARRATIVE: CASE EVENT DATE: 20160430
